FAERS Safety Report 25661041 (Version 1)
Quarter: 2025Q3

REPORT INFORMATION
  Report Type: Spontaneous
  Country: US (occurrence: None)
  Receive Date: 20250808
  Receipt Date: 20250808
  Transmission Date: 20251020
  Serious: Yes (Other)
  Sender: FDA-CTU
  Company Number: None

PATIENT
  Age: 82 Year
  Sex: Male

DRUGS (3)
  1. ZYTIGA [Suspect]
     Active Substance: ABIRATERONE ACETATE
  2. NUBEQA [Suspect]
     Active Substance: DAROLUTAMIDE
  3. ERLEADA [Suspect]
     Active Substance: APALUTAMIDE

REACTIONS (2)
  - Seizure [None]
  - Cerebrovascular accident [None]
